FAERS Safety Report 6085259-X (Version None)
Quarter: 2009Q1

REPORT INFORMATION
  Report Type: 
  Country: None (occurrence: None)
  Receive Date: 20090220
  Receipt Date: 20090130
  Transmission Date: 20090719
  Serious: Yes (Other)
  Sender: FDA-Public Use
  Company Number: US-BAYER-200832280NA

PATIENT
  Age: 84 Year
  Sex: Male
  Weight: 60 kg

DRUGS (9)
  1. NEXAVAR [Suspect]
     Indication: THYROID CANCER
     Dosage: TOTAL DAILY DOSE: 800 MG  UNIT DOSE: 200 MG
     Route: 048
     Dates: start: 20080506
  2. NEXAVAR [Suspect]
     Dosage: TOTAL DAILY DOSE: 800 MG  UNIT DOSE: 200 MG
     Route: 048
  3. PREDNISONE TAB [Concomitant]
  4. FOLIC ACID [Concomitant]
  5. CADUET [Concomitant]
  6. LEVOTHYROXINE SODIUM [Concomitant]
     Route: 048
  7. OMEPRAZOLE [Concomitant]
  8. TOPROL-XL [Concomitant]
     Route: 048
  9. SCORVITE [Concomitant]

REACTIONS (4)
  - ALOPECIA [None]
  - ERYTHEMA [None]
  - OEDEMA PERIPHERAL [None]
  - PAIN IN EXTREMITY [None]
